FAERS Safety Report 8250933-3 (Version None)
Quarter: 2012Q2

REPORT INFORMATION
  Report Type: 
  Country: None (occurrence: None)
  Receive Date: 20120402
  Receipt Date: 20120316
  Transmission Date: 20120825
  Serious: Yes (Hospitalization)
  Sender: FDA-Public Use
  Company Number: US-AMGEN-USASP2012017199

PATIENT
  Age: 43 Year
  Sex: Female

DRUGS (4)
  1. MORPHINE [Concomitant]
  2. NAVELBINE [Concomitant]
  3. AFINITOR [Concomitant]
  4. NEUPOGEN [Suspect]
     Indication: NEUTROPENIA

REACTIONS (1)
  - GENERAL PHYSICAL HEALTH DETERIORATION [None]
